FAERS Safety Report 18997674 (Version 1)
Quarter: 2021Q1

REPORT INFORMATION
  Report Type: Report from Study
  Country: US (occurrence: US)
  Receive Date: 20210311
  Receipt Date: 20210311
  Transmission Date: 20210420
  Serious: Yes (Other)
  Sender: FDA-Public Use
  Company Number: NVSC2021US049635

PATIENT
  Sex: Male

DRUGS (2)
  1. ENTRESTO [Suspect]
     Active Substance: SACUBITRIL\VALSARTAN
     Dosage: 24/26 MG, BID
     Route: 065
  2. ENTRESTO [Suspect]
     Active Substance: SACUBITRIL\VALSARTAN
     Indication: CARDIAC FAILURE
     Dosage: 0.5 DF
     Route: 048

REACTIONS (7)
  - Hypertension [Unknown]
  - Wrong technique in product usage process [Unknown]
  - Aortic aneurysm [Unknown]
  - Lung disorder [Unknown]
  - Myocardial infarction [Unknown]
  - Arrhythmia [Unknown]
  - Product dispensing error [Unknown]
